FAERS Safety Report 23798730 (Version 1)
Quarter: 2024Q2

REPORT INFORMATION
  Report Type: Spontaneous
  Country: US (occurrence: None)
  Receive Date: 20240427
  Receipt Date: 20240427
  Transmission Date: 20240716
  Serious: No
  Sender: FDA-Public Use
  Company Number: None

PATIENT
  Age: 31 Year
  Sex: Female
  Weight: 72 kg

DRUGS (1)
  1. MONISTAT 1 COMBINATION PACK [Suspect]
     Active Substance: MICONAZOLE NITRATE
     Indication: Vulvovaginal mycotic infection
     Dosage: OTHER STRENGTH : UNSURE;?OTHER QUANTITY : 1 SUPPOSITORY(IES);?OTHER FREQUENCY : ONE TIME;?
     Route: 067
     Dates: start: 20240421, end: 20240422

REACTIONS (3)
  - Vulvovaginal burning sensation [None]
  - Vulvovaginal swelling [None]
  - Pain [None]

NARRATIVE: CASE EVENT DATE: 20240427
